FAERS Safety Report 6842785-0 (Version None)
Quarter: 2010Q3

REPORT INFORMATION
  Report Type: 
  Country: None (occurrence: None)
  Receive Date: 20100709
  Receipt Date: 20100625
  Transmission Date: 20110219
  Serious: Yes (Life-Threatening, Other)
  Sender: FDA-Public Use
  Company Number: 1000014293

PATIENT
  Age: 70 Year
  Sex: Female
  Weight: 90 kg

DRUGS (14)
  1. CITALOPRAM HYDROBROMIDE [Suspect]
     Indication: DEPRESSION
     Dosage: 20 MG (20 MG, 1 IN 1 D), ORAL
     Route: 048
     Dates: start: 20070614, end: 20070616
  2. KALINOR-BRAUSETABLETTEN (TABLETS) [Concomitant]
  3. CLEXANE (40 MILLIGRAM, SOLUTION) [Concomitant]
  4. KONAKION MM (DROPS (FOR ORAL USE)) [Concomitant]
  5. FUROSEMID (40 MILLIGRAM, TABLETS) [Concomitant]
  6. BELOC ZOK (47.5 MILLIGRAM, TABLETS) [Concomitant]
  7. AMLODIPINE (5 MILLIGRAM, TABLETS) [Concomitant]
  8. ENALAPRIL (10 MILLIGRAM TABLETS) [Concomitant]
  9. L-THYROX (50 MICROGRAM, TABLETS) [Concomitant]
  10. ALLOPURINOL (100 MILLIGRAM, TABLETS) [Concomitant]
  11. ASS (100 MILLIGRAM, TABLETS) [Concomitant]
  12. LAIF (600 MILLIGRAM, TABLETS) [Concomitant]
  13. AURIUM CARDIODORON COMP (DROGS (FOR ORAL USE)) [Concomitant]
  14. BRYOPHYLLUM [Concomitant]

REACTIONS (5)
  - CONFUSIONAL STATE [None]
  - FALL [None]
  - PSYCHOTIC DISORDER [None]
  - RESTLESSNESS [None]
  - SKIN LACERATION [None]
